FAERS Safety Report 5419514-0 (Version None)
Quarter: 2007Q3

REPORT INFORMATION
  Report Type: 
  Country: None (occurrence: None)
  Receive Date: 20070820
  Receipt Date: 20070810
  Transmission Date: 20080115
  Serious: Yes (Hospitalization)
  Sender: FDA-Public Use
  Company Number: CH-AVENTIS-200713944EU

PATIENT
  Age: 84 Year
  Sex: Female
  Weight: 60 kg

DRUGS (12)
  1. ENOXAPARIN SODIUM [Suspect]
     Route: 058
     Dates: start: 20070215, end: 20070302
  2. LASIX [Suspect]
     Route: 048
     Dates: start: 20070307, end: 20070323
  3. TORASIS [Suspect]
     Route: 048
     Dates: start: 20070227, end: 20070307
  4. NEXIUM [Suspect]
     Route: 048
     Dates: start: 20070216, end: 20070323
  5. FLUOXETINE [Suspect]
     Route: 048
     Dates: start: 20070221, end: 20070423
  6. NEO-MERCAZOLE TAB [Concomitant]
     Dates: start: 20070310, end: 20070322
  7. LOPRESOR                           /00376902/ [Concomitant]
     Route: 048
     Dates: start: 20070310, end: 20070315
  8. ARICEPT [Concomitant]
     Dates: start: 20070314, end: 20070322
  9. DAFALGAN                           /00020001/ [Concomitant]
     Dates: start: 20070215, end: 20070314
  10. LAXOBERON [Concomitant]
     Route: 048
     Dates: start: 20070219, end: 20070506
  11. EPRIL [Concomitant]
     Route: 048
     Dates: start: 20070216, end: 20070318
  12. LISITRIL [Concomitant]
     Dates: start: 20070327

REACTIONS (3)
  - CONDITION AGGRAVATED [None]
  - LEUKOCYTOCLASTIC VASCULITIS [None]
  - RENAL FAILURE [None]
